FAERS Safety Report 23399551 (Version 1)
Quarter: 2024Q1

REPORT INFORMATION
  Report Type: Spontaneous
  Country: AU (occurrence: AU)
  Receive Date: 20240113
  Receipt Date: 20240113
  Transmission Date: 20240410
  Serious: Yes (Other)
  Sender: FDA-Public Use
  Company Number: AU-AMGEN-AUSSP2024007190

PATIENT
  Age: 25 Year

DRUGS (11)
  1. ADALIMUMAB [Suspect]
     Active Substance: ADALIMUMAB\ISOPROPYL ALCOHOL
     Indication: Product used for unknown indication
     Route: 058
  2. RINVOQ [Suspect]
     Active Substance: UPADACITINIB
     Indication: Rheumatoid arthritis
     Dosage: 15 MILLIGRAM
     Route: 048
     Dates: start: 202010
  3. BUTYLSCOPOLAMINE BROMIDE [Concomitant]
     Active Substance: BUTYLSCOPOLAMINE BROMIDE
     Indication: Product used for unknown indication
  4. ENDEP [Concomitant]
     Active Substance: AMITRIPTYLINE HYDROCHLORIDE
     Indication: Product used for unknown indication
     Dosage: 10 MILLIGRAM
  5. EPIPEN [Concomitant]
     Active Substance: EPINEPHRINE
     Indication: Product used for unknown indication
     Dosage: 300 MICROGRAM
     Route: 030
  6. PALEXIA [Concomitant]
     Active Substance: TAPENTADOL HYDROCHLORIDE
     Indication: Product used for unknown indication
  7. METHOTREXATE [Concomitant]
     Active Substance: METHOTREXATE
  8. COVID-19 vaccine [Concomitant]
  9. COVID-19 vaccine [Concomitant]
     Dosage: UNK
     Dates: start: 20230302
  10. VARICELLA-ZOSTER VIRUS STRAIN OKA/MERCK LIVE ANTIGEN [Concomitant]
     Active Substance: VARICELLA-ZOSTER VIRUS STRAIN OKA/MERCK LIVE ANTIGEN
  11. SOTROVIMAB [Concomitant]
     Active Substance: SOTROVIMAB
     Route: 042

REACTIONS (19)
  - Disability [Unknown]
  - Haematochezia [Unknown]
  - Fibromyalgia [Unknown]
  - Arthritis [Unknown]
  - Breast ulceration [Recovered/Resolved]
  - Cushingoid [Unknown]
  - Diarrhoea [Unknown]
  - Dyspnoea [Unknown]
  - Haemorrhage [Unknown]
  - Injection site swelling [Unknown]
  - Multimorbidity [Unknown]
  - Muscle spasms [Unknown]
  - Nausea [Unknown]
  - Pain [Unknown]
  - Post inflammatory pigmentation change [Unknown]
  - Skin ulcer [Recovered/Resolved]
  - Ulcer [Unknown]
  - Urticaria [Unknown]
  - Vomiting [Not Recovered/Not Resolved]

NARRATIVE: CASE EVENT DATE: 20220201
